FAERS Safety Report 13698771 (Version 1)
Quarter: 2017Q2

REPORT INFORMATION
  Report Type: Spontaneous
  Country: US (occurrence: US)
  Receive Date: 20170627
  Receipt Date: 20170627
  Transmission Date: 20170830
  Serious: No
  Sender: FDA-Public Use
  Company Number: None

PATIENT
  Age: 22 Year
  Sex: Female
  Weight: 78.75 kg

DRUGS (7)
  1. MELATONIN [Concomitant]
     Active Substance: MELATONIN
  2. WELLBUTRIN [Concomitant]
     Active Substance: BUPROPION HYDROCHLORIDE
  3. GENERIC PROVERA [Suspect]
     Active Substance: MEDROXYPROGESTERONE ACETATE
     Indication: AMENORRHOEA
     Dosage: ?          QUANTITY:10 TABLET(S);?
     Route: 048
  4. EVEKEO [Concomitant]
     Active Substance: AMPHETAMINE SULFATE
  5. FISH OIL [Concomitant]
     Active Substance: FISH OIL
  6. GENERIC OXCARBAZEPINE [Suspect]
     Active Substance: OXCARBAZEPINE
     Indication: BIPOLAR DISORDER
     Dosage: ?          OTHER STRENGTH:MG;QUANTITY:1 TABLET(S);?
     Route: 048
     Dates: start: 20151021, end: 20170627
  7. VITAMIN D [Concomitant]
     Active Substance: CHOLECALCIFEROL

REACTIONS (21)
  - Depression [None]
  - Eyelid oedema [None]
  - Asthenia [None]
  - Abdominal pain upper [None]
  - Dizziness [None]
  - Abdominal distension [None]
  - Malaise [None]
  - Trismus [None]
  - Discomfort [None]
  - Nausea [None]
  - Dysphonia [None]
  - Urine output decreased [None]
  - Increased appetite [None]
  - Decreased appetite [None]
  - Diarrhoea [None]
  - Headache [None]
  - Dyspnoea [None]
  - Acne [None]
  - Weight increased [None]
  - Pruritus [None]
  - Chest discomfort [None]

NARRATIVE: CASE EVENT DATE: 20170627
